FAERS Safety Report 4987915-0 (Version None)
Quarter: 2006Q2

REPORT INFORMATION
  Report Type: 
  Country: None (occurrence: None)
  Receive Date: 20060424
  Receipt Date: 20060412
  Transmission Date: 20061013
  Serious: No
  Sender: FDA-Public Use
  Company Number: 06H-062-0307523-00

PATIENT
  Age: 16 Year
  Sex: Female
  Weight: 33 kg

DRUGS (13)
  1. PROPOFOL [Suspect]
     Indication: ANAESTHESIA
     Dosage: SEE IMAGE
     Route: 042
  2. PROPOFOL [Suspect]
     Indication: MAINTENANCE OF ANAESTHESIA
     Dosage: SEE IMAGE
     Route: 042
  3. PROPOFOL [Suspect]
     Indication: ANAESTHESIA
     Dosage: SEE IMAGE
     Route: 042
  4. PROPOFOL [Suspect]
     Indication: MAINTENANCE OF ANAESTHESIA
     Dosage: SEE IMAGE
     Route: 042
  5. PROPOFOL [Suspect]
     Indication: ANAESTHESIA
     Dosage: SEE IMAGE
     Route: 042
  6. PROPOFOL [Suspect]
     Indication: MAINTENANCE OF ANAESTHESIA
     Dosage: SEE IMAGE
     Route: 042
  7. PROPOFOL [Suspect]
     Indication: ANAESTHESIA
     Dosage: SEE IMAGE
     Route: 042
  8. PROPOFOL [Suspect]
     Indication: MAINTENANCE OF ANAESTHESIA
     Dosage: SEE IMAGE
     Route: 042
  9. PIRITRAMIDE [Concomitant]
  10. CRYSTALLOIDS [Concomitant]
  11. COLLOIDS [Concomitant]
  12. PACKED RED BLOOD CELLS                (BLOOD CELLS, PACKED HUMAN) [Concomitant]
  13. NOREPINEPHRINE [Concomitant]

REACTIONS (1)
  - PROPOFOL INFUSION SYNDROME [None]
